FAERS Safety Report 16974020 (Version 1)
Quarter: 2019Q4

REPORT INFORMATION
  Report Type: Spontaneous
  Country: US (occurrence: US)
  Receive Date: 20190912
  Receipt Date: 20190912
  Transmission Date: 20200122
  Serious: Yes (Death)
  Sender: FDA-Public Use
  Company Number: None

PATIENT
  Age: 49 Year
  Sex: Male

DRUGS (10)
  1. LOVASTATIN. [Concomitant]
     Active Substance: LOVASTATIN
  2. MORPHINE [Concomitant]
     Active Substance: MORPHINE
  3. TAMOTIDINE [Concomitant]
  4. PANTOPRAZOLE [Concomitant]
     Active Substance: PANTOPRAZOLE
  5. DRONABINOL. [Concomitant]
     Active Substance: DRONABINOL
  6. FOLIC ACID. [Concomitant]
     Active Substance: FOLIC ACID
  7. MIRTAVAPINE [Concomitant]
  8. PREDNISONE SMZ/TMP [Concomitant]
  9. LIDOCAINE. [Concomitant]
     Active Substance: LIDOCAINE
  10. INLYTA [Suspect]
     Active Substance: AXITINIB
     Indication: PRODUCT USED FOR UNKNOWN INDICATION
     Route: 048
     Dates: start: 20190726, end: 20190819

REACTIONS (1)
  - Death [None]

NARRATIVE: CASE EVENT DATE: 20190911
